FAERS Safety Report 4729432-9 (Version None)
Quarter: 2005Q3

REPORT INFORMATION
  Report Type: 
  Country: None (occurrence: None)
  Receive Date: 20050728
  Receipt Date: 20050720
  Transmission Date: 20060218
  Serious: Yes (Life-Threatening, Hospitalization)
  Sender: FDA-Public Use
  Company Number: 163-20785-05060424

PATIENT
  Age: 45 Year
  Sex: Female

DRUGS (2)
  1. THALOMID [Suspect]
     Indication: ACUTE MYELOID LEUKAEMIA
     Dosage: 100 MG, QD, ORAL
     Route: 048
     Dates: start: 20050531, end: 20050617
  2. THALOMID [Suspect]
     Indication: ACUTE MYELOID LEUKAEMIA
     Dosage: 100 MG, QD, ORAL
     Route: 048
     Dates: start: 20050701

REACTIONS (4)
  - CATHETER RELATED INFECTION [None]
  - ENTEROCOCCAL BACTERAEMIA [None]
  - PNEUMONIA [None]
  - RESPIRATORY DISTRESS [None]
